FAERS Safety Report 25199824 (Version 4)
Quarter: 2025Q2

REPORT INFORMATION
  Report Type: Spontaneous
  Country: US (occurrence: US)
  Receive Date: 20250415
  Receipt Date: 20250630
  Transmission Date: 20250716
  Serious: No
  Sender: ALNYLAM PHARMACEUTICALS
  Company Number: US-ALNYLAM PHARMACEUTICALS, INC.-ALN-2025-002288

PATIENT

DRUGS (1)
  1. AMVUTTRA [Suspect]
     Active Substance: VUTRISIRAN
     Indication: Product used for unknown indication
     Route: 058
     Dates: start: 20250328, end: 20250328

REACTIONS (6)
  - Drug ineffective [Unknown]
  - Injection site discharge [Unknown]
  - Incorrect dose administered [Unknown]
  - Discomfort [Unknown]
  - Unevaluable event [Unknown]
  - Pain in extremity [Unknown]

NARRATIVE: CASE EVENT DATE: 20250401
